FAERS Safety Report 9801881 (Version 1)
Quarter: 2014Q1

REPORT INFORMATION
  Report Type: Spontaneous
  Country: US (occurrence: US)
  Receive Date: 20140107
  Receipt Date: 20140107
  Transmission Date: 20141002
  Serious: No
  Sender: FDA-Public Use
  Company Number: US-ALLERGAN-1216934US

PATIENT
  Age: 39 Year
  Sex: Female

DRUGS (1)
  1. ACZONE [Suspect]
     Indication: ACNE
     Dosage: APPLY THIN FILM TO AFFECTED AREAS OF FACE ONCE DAILY
     Route: 061
     Dates: start: 2012

REACTIONS (2)
  - Application site warmth [Unknown]
  - Application site erythema [Unknown]
